FAERS Safety Report 9169737 (Version 7)
Quarter: 2014Q2

REPORT INFORMATION
  Report Type: Spontaneous
  Country: US (occurrence: US)
  Receive Date: 20130318
  Receipt Date: 20140401
  Transmission Date: 20141212
  Serious: Yes (Hospitalization, Other)
  Sender: FDA-Public Use
  Company Number: US-009507513-1303USA007593

PATIENT
  Sex: Female
  Weight: 81.63 kg

DRUGS (4)
  1. FOSAMAX [Suspect]
     Indication: OSTEOPOROSIS
     Dosage: 70 MG, UNK
     Route: 048
     Dates: start: 200012, end: 201103
  2. FOSAMAX PLUS D [Suspect]
     Indication: BONE DENSITY DECREASED
     Dosage: 70 MG, QW
     Route: 048
     Dates: end: 201103
  3. FLUTICASONE [Concomitant]
     Indication: HYPERSENSITIVITY
     Dosage: UNK DF, QD
     Route: 045
  4. FLUTICASONE [Concomitant]
     Indication: ASTHMA

REACTIONS (69)
  - Femur fracture [Unknown]
  - Intramedullary rod insertion [Unknown]
  - Knee arthroplasty [Unknown]
  - Surgery [Unknown]
  - Femur fracture [Unknown]
  - Fracture nonunion [Not Recovered/Not Resolved]
  - Medical device removal [Unknown]
  - Surgery [Unknown]
  - Loss of consciousness [Unknown]
  - Gastrointestinal haemorrhage [Unknown]
  - Hip arthroplasty [Unknown]
  - Cholecystectomy [Unknown]
  - Stevens-Johnson syndrome [Unknown]
  - Anxiety [Unknown]
  - Depression [Unknown]
  - Impaired healing [Unknown]
  - Osteoporosis [Unknown]
  - Hypertension [Unknown]
  - Hyperlipidaemia [Unknown]
  - Adverse event [Unknown]
  - Insulin-requiring type 2 diabetes mellitus [Unknown]
  - Ulcer haemorrhage [Unknown]
  - Colitis microscopic [Unknown]
  - Dehydration [Unknown]
  - Restless legs syndrome [Unknown]
  - Fibromyalgia [Unknown]
  - Osteoarthritis [Unknown]
  - Hysterectomy [Unknown]
  - Tonsillectomy [Unknown]
  - Cyst removal [Unknown]
  - Oesophagogastric fundoplasty [Unknown]
  - Anaemia [Unknown]
  - Syncope [Unknown]
  - Hypotension [Unknown]
  - Confusional state [Unknown]
  - Fatigue [Unknown]
  - Wound complication [Unknown]
  - Wound infection staphylococcal [Unknown]
  - Medical device complication [Unknown]
  - Fall [Unknown]
  - Osteoarthritis [Unknown]
  - Osteoarthritis [Unknown]
  - Haematoma [Unknown]
  - Subcutaneous emphysema [Unknown]
  - Osteopenia [Unknown]
  - Vascular calcification [Unknown]
  - Radiculitis lumbosacral [Unknown]
  - Limb malformation [Unknown]
  - Feeling abnormal [Unknown]
  - Intervertebral disc degeneration [Unknown]
  - Intervertebral disc protrusion [Unknown]
  - Spondylolisthesis [Unknown]
  - Facet joint syndrome [Unknown]
  - Sacroiliitis [Unknown]
  - Chronic obstructive pulmonary disease [Not Recovered/Not Resolved]
  - Anaemia postoperative [Unknown]
  - Anaemia postoperative [Unknown]
  - Hypertonic bladder [Unknown]
  - Urge incontinence [Unknown]
  - Bursitis [Unknown]
  - Actinic keratosis [Unknown]
  - Seborrhoeic keratosis [Unknown]
  - Injection related reaction [Unknown]
  - Cardiac disorder [Unknown]
  - Bone lesion excision [Unknown]
  - Exostosis [Unknown]
  - Osteosclerosis [Unknown]
  - Vascular calcification [Unknown]
  - Arthralgia [Unknown]
